FAERS Safety Report 9106211 (Version 5)
Quarter: 2014Q2

REPORT INFORMATION
  Report Type: Report from Study
  Country: AR (occurrence: AR)
  Receive Date: 20130220
  Receipt Date: 20140419
  Transmission Date: 20141212
  Serious: Yes (Death)
  Sender: FDA-Public Use
  Company Number: AR-ROCHE-1192689

PATIENT
  Age: 65 Year
  Sex: Female

DRUGS (2)
  1. RANIBIZUMAB [Suspect]
     Indication: PRODUCT USED FOR UNKNOWN INDICATION
     Route: 050
     Dates: start: 20111215
  2. RANIBIZUMAB [Suspect]
     Route: 050
     Dates: start: 20120117, end: 20120117

REACTIONS (1)
  - Death [Fatal]
